FAERS Safety Report 7993526-5 (Version None)
Quarter: 2011Q4

REPORT INFORMATION
  Report Type: 
  Country: None (occurrence: None)
  Receive Date: 20111219
  Receipt Date: 20110926
  Transmission Date: 20120403
  Serious: No
  Sender: FDA-Public Use
  Company Number: US-ASTRAZENECA-2011SE57580

PATIENT
  Age: 6906 Day
  Sex: Male
  Weight: 85.3 kg

DRUGS (5)
  1. CRESTOR [Suspect]
     Route: 048
     Dates: start: 20110401
  2. ASPIRIN [Concomitant]
  3. METOPROLOL [Concomitant]
     Indication: HEART RATE IRREGULAR
  4. PLAVIX [Concomitant]
     Indication: STENT PLACEMENT
  5. CRESTOR [Suspect]
     Route: 048
     Dates: start: 20110401, end: 20110920

REACTIONS (2)
  - WEIGHT DECREASED [None]
  - MYALGIA [None]
